FAERS Safety Report 5213245-8 (Version None)
Quarter: 2007Q1

REPORT INFORMATION
  Report Type: 
  Country: None (occurrence: None)
  Receive Date: 20070117
  Receipt Date: 20070117
  Transmission Date: 20070707
  Serious: Yes (Hospitalization)
  Sender: FDA-Public Use
  Company Number: None

PATIENT
  Age: 76 Year
  Sex: Male

DRUGS (8)
  1. HEPARIN [Suspect]
     Indication: THROMBOSIS PROPHYLAXIS
     Dates: start: 20061026, end: 20061109
  2. ALBUTEROL [Concomitant]
  3. ASPIRIN [Concomitant]
  4. CARVEDILOL [Concomitant]
  5. FUROSEMIDE [Concomitant]
  6. HALOPERIDOL [Concomitant]
  7. HEPARIN [Concomitant]
  8. REGULAR INSULIN [Concomitant]

REACTIONS (2)
  - ANTI-PLATELET ANTIBODY POSITIVE [None]
  - PLATELET COUNT DECREASED [None]
